FAERS Safety Report 8074707-1 (Version None)
Quarter: 2012Q1

REPORT INFORMATION
  Report Type: 
  Country: None (occurrence: None)
  Receive Date: 20120126
  Receipt Date: 20120124
  Transmission Date: 20120608
  Serious: Yes (Hospitalization)
  Sender: FDA-Public Use
  Company Number: GR-ABBOTT-12P-066-0894637-00

PATIENT
  Age: 44 Year
  Sex: Male

DRUGS (10)
  1. COMBIVIR [Concomitant]
     Indication: PRODUCT USED FOR UNKNOWN INDICATION
  2. SOLU-MEDROL [Concomitant]
  3. KALETRA [Suspect]
  4. BACTRIMEL [Concomitant]
     Indication: PRODUCT USED FOR UNKNOWN INDICATION
  5. KALETRA [Suspect]
     Indication: HIV TEST POSITIVE
  6. CYCLOPHOSPHAMIDE [Concomitant]
     Indication: VASCULITIS
  7. CYCLOPHOSPHAMIDE [Concomitant]
  8. INTRATECT [Concomitant]
     Indication: VASCULITIS
  9. SOLU-MEDROL [Concomitant]
     Indication: VASCULITIS
  10. INTRATECT [Concomitant]

REACTIONS (2)
  - DIARRHOEA [None]
  - WEIGHT DECREASED [None]
